FAERS Safety Report 9892769 (Version 1)
Quarter: 2014Q1

REPORT INFORMATION
  Report Type: Report from Study
  Country: PE (occurrence: PE)
  Receive Date: 20140212
  Receipt Date: 20140212
  Transmission Date: 20141002
  Serious: Yes (Other)
  Sender: FDA-Public Use
  Company Number: PE-BRISTOL-MYERS SQUIBB COMPANY-20167193

PATIENT
  Age: 51 Year
  Sex: Female
  Weight: 79 kg

DRUGS (1)
  1. GLUCOPHAGE XR TABS [Suspect]
     Indication: HYPERINSULINAEMIA
     Dosage: 1DF (0.5 DF, 2 IN 1 DAY)?1000MG TABLET.HALF A TABLET TWICE PER DAY.
     Route: 048

REACTIONS (1)
  - Labyrinthitis [Recovering/Resolving]
